FAERS Safety Report 9771192 (Version 1)
Quarter: 2013Q4

REPORT INFORMATION
  Report Type: Spontaneous
  Country: US (occurrence: US)
  Receive Date: 20131218
  Receipt Date: 20131218
  Transmission Date: 20140711
  Serious: No
  Sender: FDA-Public Use
  Company Number: US-B.I. PHARMACEUTICALS,INC./RIDGEFIELD-2013-BI-40901BP

PATIENT
  Age: 72 Year
  Sex: Male
  Weight: 76 kg

DRUGS (3)
  1. PRADAXA [Suspect]
     Indication: HEART RATE IRREGULAR
     Dosage: 300 MG
     Route: 048
     Dates: start: 2010
  2. FLOMAX [Concomitant]
     Indication: PROSTATITIS
     Dosage: 0.4 MG
     Route: 048
     Dates: start: 2002
  3. OMEPRAZOLE [Concomitant]
     Indication: ABDOMINAL DISCOMFORT
     Dosage: 20 MG
     Route: 048
     Dates: start: 2001

REACTIONS (2)
  - Headache [Recovered/Resolved]
  - Off label use [Unknown]
